FAERS Safety Report 15779074 (Version 1)
Quarter: 2019Q1

REPORT INFORMATION
  Report Type: Report from Study
  Country: BR (occurrence: BR)
  Receive Date: 20190101
  Receipt Date: 20190101
  Transmission Date: 20190417
  Serious: Yes (Hospitalization, Other)
  Sender: FDA-Public Use
  Company Number: PHHY2017BR104162

PATIENT
  Age: 73 Year
  Sex: Female
  Weight: 56 kg

DRUGS (7)
  1. XOLAIR [Suspect]
     Active Substance: OMALIZUMAB
     Dosage: UNK
     Route: 058
     Dates: start: 20171204
  2. XOLAIR [Suspect]
     Active Substance: OMALIZUMAB
     Indication: ASTHMA
     Dosage: 600 MG, QMO (EVERY 15 DAYS SHE USES TWO AMPOULES OF 150MG)
     Route: 058
     Dates: start: 201208
  3. MIFLONIDE [Suspect]
     Active Substance: BUDESONIDE
     Indication: PRODUCT USED FOR UNKNOWN INDICATION
     Dosage: UNK
     Route: 065
     Dates: start: 2012
  4. FORASEQ [Suspect]
     Active Substance: BUDESONIDE\FORMOTEROL FUMARATE
     Indication: DYSPNOEA
     Dosage: UNK
     Route: 065
  5. XOLAIR [Suspect]
     Active Substance: OMALIZUMAB
     Dosage: UNK
     Route: 058
     Dates: start: 201705
  6. ALENIA [Concomitant]
     Active Substance: BUDESONIDE\FORMOTEROL FUMARATE
     Indication: PRODUCT USED FOR UNKNOWN INDICATION
     Route: 065
  7. XOLAIR [Suspect]
     Active Substance: OMALIZUMAB
     Dosage: UNK
     Route: 058
     Dates: start: 20170411

REACTIONS (22)
  - Malaise [Recovering/Resolving]
  - Speech disorder [Recovering/Resolving]
  - Increased bronchial secretion [Unknown]
  - Body height decreased [Unknown]
  - Weight decreased [Unknown]
  - Temperature intolerance [Unknown]
  - Fatigue [Unknown]
  - Pneumonia [Recovered/Resolved]
  - Concomitant disease aggravated [Unknown]
  - Asthma [Recovering/Resolving]
  - Memory impairment [Unknown]
  - Sensitivity to weather change [Unknown]
  - Decreased immune responsiveness [Unknown]
  - Spinal disorder [Unknown]
  - Blood cholesterol increased [Unknown]
  - Decreased appetite [Unknown]
  - Nausea [Unknown]
  - Dyspnoea [Recovering/Resolving]
  - Quality of life decreased [Unknown]
  - Asthmatic crisis [Recovering/Resolving]
  - Cerebrovascular accident [Unknown]
  - Depression [Not Recovered/Not Resolved]

NARRATIVE: CASE EVENT DATE: 201801
